FAERS Safety Report 23263995 (Version 2)
Quarter: 2023Q4

REPORT INFORMATION
  Report Type: Spontaneous
  Country: JP (occurrence: None)
  Receive Date: 20231205
  Receipt Date: 20231222
  Transmission Date: 20240110
  Serious: Yes (Other)
  Sender: FDA-Public Use
  Company Number: 2023A100533

PATIENT
  Age: 74 Year
  Sex: Male
  Weight: 70 kg

DRUGS (10)
  1. PULMICORT TURBUHALER [Suspect]
     Active Substance: BUDESONIDE
     Indication: Asthma
     Dosage: DOSE UNKNOWN, 112 DOSES UNKNOWN
     Route: 055
     Dates: start: 20230112, end: 20230409
  2. PULMICORT TURBUHALER [Suspect]
     Active Substance: BUDESONIDE
     Indication: Chronic obstructive pulmonary disease
     Dosage: DOSE UNKNOWN, 112 DOSES UNKNOWN
     Route: 055
     Dates: start: 20230112, end: 20230409
  3. PREGABALIN [Suspect]
     Active Substance: PREGABALIN
     Indication: Neuralgia
     Dosage: BEFORE BEDTIME
     Route: 048
     Dates: start: 20230313, end: 20230409
  4. CARBOPLATIN [Suspect]
     Active Substance: CARBOPLATIN
     Indication: Lung adenocarcinoma
     Dates: start: 20230410
  5. DOCETAXEL [Suspect]
     Active Substance: DOCETAXEL\DOCETAXEL ANHYDROUS
     Indication: Lung adenocarcinoma
     Dosage: UNKNOWN
     Dates: start: 20230410
  6. GLYCOPYRRONIUM\INDACATEROL [Concomitant]
     Active Substance: GLYCOPYRRONIUM\INDACATEROL
     Route: 055
     Dates: start: 20230201, end: 20230209
  7. AMLODIPINE [Concomitant]
     Active Substance: AMLODIPINE BESYLATE
     Route: 048
     Dates: start: 20230220
  8. CLOPIDOGREL [Concomitant]
     Active Substance: CLOPIDOGREL BISULFATE
     Dosage: AFTER BREAKFAST
     Route: 048
     Dates: start: 20230220
  9. TORSEMIDE [Concomitant]
     Active Substance: TORSEMIDE
     Dosage: AFTER BREAKFAST
     Route: 048
     Dates: start: 20230313
  10. ATEZOLIZUMAB [Concomitant]
     Active Substance: ATEZOLIZUMAB
     Dates: start: 2023, end: 2023

REACTIONS (6)
  - Febrile neutropenia [Recovering/Resolving]
  - Eosinophilia [Recovered/Resolved]
  - Eosinophilic pleural effusion [Recovered/Resolved]
  - Performance status decreased [Recovering/Resolving]
  - Neuralgia [Not Recovered/Not Resolved]
  - Sleep disorder due to a general medical condition [Recovered/Resolved]

NARRATIVE: CASE EVENT DATE: 20230313
